FAERS Safety Report 7367715-7 (Version None)
Quarter: 2011Q1

REPORT INFORMATION
  Report Type: 
  Country: None (occurrence: None)
  Receive Date: 20110322
  Receipt Date: 20110314
  Transmission Date: 20110831
  Serious: Yes (Death)
  Sender: FDA-Public Use
  Company Number: JP-BAXTER-2011BH006531

PATIENT
  Age: 55 Year
  Sex: Male

DRUGS (6)
  1. RADIOTHERAPY [Suspect]
     Indication: ACUTE MYELOMONOCYTIC LEUKAEMIA
     Route: 065
  2. FLUDARABINE PHOSPHATE [Suspect]
     Indication: ACUTE MYELOMONOCYTIC LEUKAEMIA
     Route: 065
  3. MELPHALAN [Suspect]
     Indication: ACUTE MYELOMONOCYTIC LEUKAEMIA
     Route: 065
  4. BUSULFAN [Suspect]
     Indication: ACUTE MYELOMONOCYTIC LEUKAEMIA
     Route: 065
  5. CYCLOPHOSPHAMIDE [Suspect]
     Indication: ACUTE MYELOMONOCYTIC LEUKAEMIA
     Route: 065
  6. ETOPOSIDE [Suspect]
     Indication: ACUTE MYELOMONOCYTIC LEUKAEMIA
     Route: 065

REACTIONS (1)
  - OBLITERATIVE BRONCHIOLITIS [None]
